FAERS Safety Report 24037620 (Version 1)
Quarter: 2024Q3

REPORT INFORMATION
  Report Type: Report from Study
  Country: US (occurrence: US)
  Receive Date: 20240702
  Receipt Date: 20240702
  Transmission Date: 20241016
  Serious: Yes (Hospitalization)
  Sender: ROCHE
  Company Number: US-ROCHE-10000008077

PATIENT
  Age: 57 Year
  Sex: Female

DRUGS (2)
  1. OCREVUS [Suspect]
     Active Substance: OCRELIZUMAB
     Indication: Relapsing multiple sclerosis
     Route: 065
     Dates: start: 20190603
  2. RITUXAN [Suspect]
     Active Substance: RITUXIMAB
     Indication: Relapsing multiple sclerosis
     Route: 065

REACTIONS (13)
  - Sinusitis [Not Recovered/Not Resolved]
  - Oropharyngeal pain [Recovered/Resolved]
  - Off label use [Unknown]
  - Pulmonary embolism [Unknown]
  - COVID-19 [Unknown]
  - Asthenia [Unknown]
  - Peroneal nerve palsy [Unknown]
  - Fall [Unknown]
  - Fatigue [Unknown]
  - Anxiety [Unknown]
  - Paraesthesia [Unknown]
  - Paraesthesia [Unknown]
  - Band sensation [Unknown]
